FAERS Safety Report 8390994-4 (Version None)
Quarter: 2012Q2

REPORT INFORMATION
  Report Type: 
  Country: None (occurrence: None)
  Receive Date: 20120529
  Receipt Date: 20120517
  Transmission Date: 20120825
  Serious: Yes (Other)
  Sender: FDA-Public Use
  Company Number: CO-JNJFOC-20120305124

PATIENT
  Age: 33 Year
  Sex: Male

DRUGS (4)
  1. REMICADE [Suspect]
     Route: 042
     Dates: start: 20110701
  2. AZATHIOPRINE [Concomitant]
     Indication: COLITIS ULCERATIVE
     Route: 065
     Dates: start: 20110501
  3. REMICADE [Suspect]
     Indication: COLITIS ULCERATIVE
     Route: 042
     Dates: start: 20120302
  4. CLEMASTINE [Concomitant]
     Indication: PREMEDICATION
     Route: 065

REACTIONS (2)
  - INFUSION RELATED REACTION [None]
  - RESPIRATORY DISTRESS [None]
